FAERS Safety Report 19744332 (Version 3)
Quarter: 2022Q2

REPORT INFORMATION
  Report Type: Spontaneous
  Country: US (occurrence: US)
  Receive Date: 20210825
  Receipt Date: 20220426
  Transmission Date: 20220721
  Serious: No
  Sender: FDA-Public Use
  Company Number: US-LUPIN PHARMACEUTICALS INC.-2021-15255

PATIENT
  Sex: Female

DRUGS (2)
  1. ALBUTEROL SULFATE [Suspect]
     Active Substance: ALBUTEROL SULFATE
     Indication: Chronic obstructive pulmonary disease
     Dosage: UNK UNK, QID (2 PUFFS EVERY 6 HOURS)
  2. OXYGEN [Concomitant]
     Active Substance: OXYGEN
     Indication: Dyspnoea
     Dosage: UNK
     Route: 065

REACTIONS (3)
  - Device breakage [Unknown]
  - Device delivery system issue [Unknown]
  - No adverse event [Unknown]
